FAERS Safety Report 7104042-7 (Version None)
Quarter: 2010Q4

REPORT INFORMATION
  Report Type: 
  Country: None (occurrence: None)
  Receive Date: 20101115
  Receipt Date: 20100517
  Transmission Date: 20110411
  Serious: No
  Sender: FDA-Public Use
  Company Number: US-ALLERGAN-1006473US

PATIENT
  Age: 54 Year
  Sex: Female

DRUGS (1)
  1. BOTOXA? [Suspect]
     Indication: FACIAL SPASM
     Dosage: UNK
     Route: 030
     Dates: start: 20100406, end: 20100406

REACTIONS (1)
  - DRUG INEFFECTIVE [None]
